FAERS Safety Report 12133916 (Version 2)
Quarter: 2016Q1

REPORT INFORMATION
  Report Type: Spontaneous
  Country: AT (occurrence: AT)
  Receive Date: 20160301
  Receipt Date: 20160302
  Transmission Date: 20160526
  Serious: Yes (Other)
  Sender: FDA-Public Use
  Company Number: AT-ASTRAZENECA-2016SE20450

PATIENT
  Age: 72 Year
  Sex: Female

DRUGS (2)
  1. THYREX [Concomitant]
     Active Substance: LEVOTHYROXINE SODIUM
  2. CRESTOR [Suspect]
     Active Substance: ROSUVASTATIN CALCIUM
     Route: 048

REACTIONS (3)
  - Sensation of foreign body [Unknown]
  - Aspiration [Unknown]
  - Pharyngeal disorder [Unknown]
